FAERS Safety Report 12126052 (Version 3)
Quarter: 2016Q2

REPORT INFORMATION
  Report Type: Spontaneous
  Country: US (occurrence: US)
  Receive Date: 20160229
  Receipt Date: 20160505
  Transmission Date: 20160815
  Serious: Yes (Life-Threatening, Hospitalization)
  Sender: FDA-Public Use
  Company Number: US-ASTRAZENECA-2016SE20022

PATIENT
  Age: 24564 Day
  Sex: Female
  Weight: 117 kg

DRUGS (1)
  1. TUDORZA PRESSAIR [Suspect]
     Active Substance: ACLIDINIUM BROMIDE
     Indication: CHRONIC OBSTRUCTIVE PULMONARY DISEASE
     Dosage: 400 UG, ONE PUFF, TWICE A DAY
     Route: 055
     Dates: start: 2013

REACTIONS (5)
  - Drug dose omission [Not Recovered/Not Resolved]
  - Visual impairment [Not Recovered/Not Resolved]
  - Weight increased [Unknown]
  - Cerebrovascular accident [Not Recovered/Not Resolved]
  - Product quality issue [Unknown]

NARRATIVE: CASE EVENT DATE: 20151216
